FAERS Safety Report 23245185 (Version 1)
Quarter: 2023Q4

REPORT INFORMATION
  Report Type: Spontaneous
  Country: US (occurrence: US)
  Receive Date: 20231130
  Receipt Date: 20231130
  Transmission Date: 20240109
  Serious: No
  Sender: FDA-Public Use
  Company Number: US-IBSA PHARMA INC.-2023IBS000736

PATIENT

DRUGS (2)
  1. TIROSINT [Suspect]
     Active Substance: LEVOTHYROXINE SODIUM
     Indication: Thyroid hormone replacement therapy
     Dosage: 88 MICROGRAM, DAILY
     Route: 065
     Dates: start: 202305, end: 202307
  2. TIROSINT [Suspect]
     Active Substance: LEVOTHYROXINE SODIUM
     Dosage: 75 MICROGRAM, QD
     Route: 065
     Dates: start: 202307, end: 202307

REACTIONS (2)
  - Blood thyroid stimulating hormone decreased [Unknown]
  - Product availability issue [Unknown]

NARRATIVE: CASE EVENT DATE: 20230101
